FAERS Safety Report 4597788-6 (Version None)
Quarter: 2005Q1

REPORT INFORMATION
  Report Type: 
  Country: None (occurrence: None)
  Receive Date: 20050303
  Receipt Date: 20050124
  Transmission Date: 20050727
  Serious: Yes (Hospitalization)
  Sender: FDA-Public Use
  Company Number: US-MERCK-0501USA03617

PATIENT
  Age: 60 Year
  Sex: Female

DRUGS (4)
  1. VIOXX [Suspect]
     Indication: OSTEOARTHRITIS
     Route: 048
     Dates: start: 20010101, end: 20040101
  2. COZAAR [Concomitant]
     Route: 048
  3. ATENOLOL [Concomitant]
     Route: 065
  4. BACLOFEN [Concomitant]
     Route: 065

REACTIONS (4)
  - ARTHRALGIA [None]
  - BACK PAIN [None]
  - HYPOAESTHESIA [None]
  - TACHYCARDIA [None]
